FAERS Safety Report 9583452 (Version 2)
Quarter: 2013Q4

REPORT INFORMATION
  Report Type: Spontaneous
  Country: US (occurrence: US)
  Receive Date: 20131002
  Receipt Date: 20131002
  Transmission Date: 20140711
  Serious: No
  Sender: FDA-Public Use
  Company Number: US-AMGEN-USASP2013045112

PATIENT
  Age: 57 Year
  Sex: Female
  Weight: 58.73 kg

DRUGS (3)
  1. ENBREL [Suspect]
     Indication: RHEUMATOID ARTHRITIS
     Dosage: 50 MG, QWK
     Route: 058
     Dates: start: 20130612
  2. METHOTREXATE [Suspect]
     Indication: RHEUMATOID ARTHRITIS
     Dosage: 2.5 MG, QWK (3 AM AND 4 PM)
     Route: 048
     Dates: start: 20130617
  3. METHOTREXATE [Suspect]
     Dosage: 2.5 MG, QWK (3 AM AND 4 PM)
     Route: 048
     Dates: start: 20130628

REACTIONS (3)
  - Nausea [Recovered/Resolved]
  - Vomiting [Recovered/Resolved]
  - Paraesthesia [Recovered/Resolved]
